FAERS Safety Report 15766965 (Version 1)
Quarter: 2018Q4

REPORT INFORMATION
  Report Type: Spontaneous
  Country: IT (occurrence: IT)
  Receive Date: 20181227
  Receipt Date: 20181227
  Transmission Date: 20190205
  Serious: Yes (Hospitalization)
  Sender: FDA-Public Use
  Company Number: IT-TAKEDA-2018TUS036229

PATIENT
  Age: 71 Year
  Sex: Male

DRUGS (6)
  1. LINEZOLID. [Concomitant]
     Active Substance: LINEZOLID
     Indication: INFECTION
     Dosage: UNK
     Route: 042
  2. LASITONE [Concomitant]
     Active Substance: FUROSEMIDE\SPIRONOLACTONE
     Dosage: 25 MG + 37 MG
  3. PRADAXA [Concomitant]
     Active Substance: DABIGATRAN ETEXILATE MESYLATE
     Indication: ATRIAL FIBRILLATION
     Dosage: 110 MG, UNK
     Route: 048
  4. MEROPENEM                          /01250502/ [Concomitant]
     Active Substance: MEROPENEM
     Indication: INFECTION
     Dosage: UNK
     Route: 042
  5. DILATREND [Concomitant]
     Active Substance: CARVEDILOL
     Indication: HYPERTENSION
     Dosage: 6.25 MG, UNK
     Route: 048
  6. ENTYVIO [Suspect]
     Active Substance: VEDOLIZUMAB
     Indication: COLITIS ULCERATIVE
     Dosage: UNK
     Route: 042
     Dates: start: 20180627, end: 20181112

REACTIONS (3)
  - Pyrexia [Recovering/Resolving]
  - Pneumonia [Recovering/Resolving]
  - Dyspnoea [Recovering/Resolving]

NARRATIVE: CASE EVENT DATE: 20181112
